FAERS Safety Report 17443155 (Version 1)
Quarter: 2020Q1

REPORT INFORMATION
  Report Type: Spontaneous
  Country: US (occurrence: US)
  Receive Date: 20200206
  Receipt Date: 20200206
  Transmission Date: 20200409
  Serious: Yes (Hospitalization)
  Sender: FDA-Public Use
  Company Number: None

PATIENT
  Age: 56 Year
  Sex: Male
  Weight: 63.96 kg

DRUGS (1)
  1. ATORVASTATIN (ATORVASTATIN CA 40MG TAB) [Suspect]
     Active Substance: ATORVASTATIN CALCIUM
     Indication: ANTICOAGULANT THERAPY
     Route: 048
     Dates: start: 20191229, end: 20200131

REACTIONS (4)
  - Asthenia [None]
  - Fatigue [None]
  - Abdominal distension [None]
  - Hepatic enzyme increased [None]

NARRATIVE: CASE EVENT DATE: 20200131
